FAERS Safety Report 6402170-2 (Version None)
Quarter: 2009Q4

REPORT INFORMATION
  Report Type: 
  Country: None (occurrence: None)
  Receive Date: 20091015
  Receipt Date: 20091013
  Transmission Date: 20100525
  Serious: Yes (Life-Threatening, Other)
  Sender: FDA-Public Use
  Company Number: BR-WYE-H11481609

PATIENT
  Sex: Female
  Weight: 84 kg

DRUGS (5)
  1. PRISTIQ [Suspect]
     Indication: DEPRESSION
     Route: 048
     Dates: start: 20091001
  2. MODURETIC 5-50 [Concomitant]
     Indication: DIURETIC THERAPY
     Dosage: 25 MG/2.5, 1 PER DAY
     Dates: start: 19990101
  3. SIMVASTATIN [Concomitant]
     Indication: HYPERCHOLESTEROLAEMIA
     Dates: start: 19990101
  4. ALPRAZOLAM [Concomitant]
     Indication: PANIC DISORDER
     Dates: start: 20040101
  5. ATENOLOL [Concomitant]
     Indication: HYPERTENSION
     Dates: start: 19990101

REACTIONS (11)
  - ANGER [None]
  - CRYING [None]
  - DEPRESSION [None]
  - DIZZINESS [None]
  - EUPHORIC MOOD [None]
  - FEELING ABNORMAL [None]
  - FEELING OF DESPAIR [None]
  - INTENTIONAL SELF-INJURY [None]
  - MENTAL DISORDER [None]
  - NERVOUSNESS [None]
  - SUICIDAL IDEATION [None]
